FAERS Safety Report 6620031-0 (Version None)
Quarter: 2010Q1

REPORT INFORMATION
  Report Type: 
  Country: None (occurrence: None)
  Receive Date: 20100309
  Receipt Date: 20100301
  Transmission Date: 20100710
  Serious: Yes (Other)
  Sender: FDA-Public Use
  Company Number: GB-JNJCH-2010002966

PATIENT
  Sex: Female
  Weight: 58 kg

DRUGS (15)
  1. NICORETTE INVISI 25MG [Suspect]
     Indication: DRUG USE FOR UNKNOWN INDICATION
     Route: 062
     Dates: start: 20100105, end: 20100119
  2. PREGABALIN [Concomitant]
     Indication: ARTHRALGIA
     Dosage: TEXT:100MG 2 TWICE DAILY
     Route: 048
  3. ASPIRIN [Concomitant]
     Indication: ACUTE MYOCARDIAL INFARCTION
     Dosage: TEXT:75 MG ONE DAILY
     Route: 048
  4. CAPSAICIN [Concomitant]
     Indication: ARTHRALGIA
     Dosage: TEXT:FOUR TIMES DAILY
     Route: 061
  5. CLOPIDOGREL [Concomitant]
     Indication: STENT PLACEMENT
     Dosage: TEXT:75MG ONE ONCE DAILY
     Route: 048
  6. LANSOPRAZOLE [Concomitant]
     Indication: DYSPEPSIA
     Dosage: TEXT:15MG 1-2 SOS
     Route: 048
  7. MERBENTYL [Concomitant]
     Indication: IRRITABLE BOWEL SYNDROME
     Dosage: TEXT:10 MG ONE 3 TIMES/DAY
     Route: 048
  8. GLYCERYL TRINITRATE [Concomitant]
     Indication: ACUTE MYOCARDIAL INFARCTION
     Dosage: TEXT:ONE PUFF AS NEEDED
     Route: 055
  9. ATORVASTATIN CALCIUM [Concomitant]
     Indication: HYPERCHOLESTEROLAEMIA
     Dosage: TEXT:80MG ONE EACH NIGHT
     Route: 048
  10. BISOPROLOL [Concomitant]
     Indication: ACUTE MYOCARDIAL INFARCTION
     Dosage: TEXT:2.5 MG ONE DAILY
     Route: 048
  11. CITALOPRAM HYDROBROMIDE [Concomitant]
     Indication: DEPRESSION
     Dosage: TEXT:20MG EVERY DAY
     Route: 048
  12. ISOSORBIDE [Concomitant]
     Indication: ACUTE MYOCARDIAL INFARCTION
     Dosage: TEXT:10MG ONE TWICE DAILY
     Route: 048
  13. RAMIPRIL [Concomitant]
     Indication: ACUTE MYOCARDIAL INFARCTION
     Dosage: TEXT:2.5MG ONE DAILY
     Route: 048
  14. REMEDEINE [Concomitant]
     Indication: ARTHRALGIA
     Dosage: TEXT:1 OR 2 EVERY 4-6 HOURS
     Route: 048
  15. SOLIFENACIN SUCCINATE [Concomitant]
     Indication: POLLAKIURIA
     Dosage: TEXT:5MG 2 DAILY
     Route: 048

REACTIONS (6)
  - APPLICATION SITE ERYTHEMA [None]
  - APPLICATION SITE PAIN [None]
  - APPLICATION SITE REACTION [None]
  - APPLICATION SITE VESICLES [None]
  - PRURITUS [None]
  - RASH [None]
